FAERS Safety Report 5671711-5 (Version None)
Quarter: 2008Q1

REPORT INFORMATION
  Report Type: 
  Country: None (occurrence: None)
  Receive Date: 20080314
  Receipt Date: 20080305
  Transmission Date: 20080703
  Serious: Yes (Other)
  Sender: FDA-Public Use
  Company Number: CHPA2008US04121

PATIENT
  Age: 43 Year
  Sex: Male

DRUGS (1)
  1. GAS-X EXTSTR CHEWABLE TABS CHERRY CREME (NCH)(SIMETHICONE) CHEWABLE TA [Suspect]
     Indication: ABDOMINAL DISTENSION
     Dosage: 1000 MG, ORAL
     Route: 048

REACTIONS (3)
  - CONSTIPATION [None]
  - HAEMATOCHEZIA [None]
  - OVERDOSE [None]
